FAERS Safety Report 24463265 (Version 1)
Quarter: 2024Q4

REPORT INFORMATION
  Report Type: Report from Study
  Country: US (occurrence: US)
  Receive Date: 20241018
  Receipt Date: 20241018
  Transmission Date: 20250115
  Serious: No
  Sender: ROCHE
  Company Number: US-ROCHE-2775648

PATIENT
  Age: 30 Year
  Sex: Female

DRUGS (31)
  1. XOLAIR [Suspect]
     Active Substance: OMALIZUMAB
     Indication: Chronic spontaneous urticaria
     Dosage: LAST INJECTION DATE: 03/SEP/2020.
     Route: 058
     Dates: start: 20201030
  2. XOLAIR [Suspect]
     Active Substance: OMALIZUMAB
     Indication: Angioedema
     Route: 058
  3. SINGULAIR [Concomitant]
     Active Substance: MONTELUKAST SODIUM
     Dosage: 22/SEP/2017
     Route: 048
  4. LORATADINE [Concomitant]
     Active Substance: LORATADINE
     Route: 048
     Dates: start: 20170922
  5. ZANTAC [Concomitant]
     Active Substance: RANITIDINE HYDROCHLORIDE
     Dosage: 22/SEP/2017
     Route: 048
  6. DEPO-PROVERA [Concomitant]
     Active Substance: MEDROXYPROGESTERONE ACETATE
     Dosage: INJECT ONE ML INTO THE MUSCLE AS SINGLE DOSE.
  7. SIMETHICONE (DIMETHICONE) [Concomitant]
     Active Substance: DIMETHICONE
     Route: 048
  8. ALIGN [Concomitant]
     Active Substance: BIFIDOBACTERIUM LONGUM SUBSP. INFANTIS
     Route: 048
  9. ZYRTEC [Concomitant]
     Active Substance: CETIRIZINE HYDROCHLORIDE
     Route: 048
  10. DELTASONE [Concomitant]
     Active Substance: PREDNISONE
     Dosage: 4 TABLET FOR 3 DAYS, THEN 3 TABLETS FOR 3 DAYS, THEN 2 TABLETS FOR 3 DAYS, THEN 1 TABLETS FOR 3 DAYS
  11. BENADRYL [Concomitant]
     Active Substance: DIPHENHYDRAMINE HYDROCHLORIDE
     Indication: Hypersensitivity
     Route: 048
  12. ATIVAN [Concomitant]
     Active Substance: LORAZEPAM
     Indication: Anxiety
     Route: 048
  13. DIPHTHERIA AND TETANUS TOXOIDS AND ACELLULAR PERTUSSIS VACCINE ADSORBE [Concomitant]
     Active Substance: DIPHTHERIA AND TETANUS TOXOIDS AND ACELLULAR PERTUSSIS VACCINE ADSORBED
     Dosage: DATES ADMINISTERED: 09/MAR/1994, 11/APR/1994, 09/JUL/1994, 20/MAR/1995, 08/DEC/1997
     Route: 030
  14. HUMAN PAPILLOMAVIRUS QUADRIVALENT (TYPES 6, 11, 16, AND 18) VACCINE, R [Concomitant]
     Active Substance: HUMAN PAPILLOMAVIRUS QUADRIVALENT (TYPES 6, 11, 16, AND 18) VACCINE, RECOMBINANT
     Dosage: DATE ADMINISTERED: 06/FEB/2008.
     Route: 030
  15. HEPATITIS A VACCINE NOS [Concomitant]
     Active Substance: HEPATITIS A VACCINE, INACTIVATED
     Dosage: DATES ADMINISTERED: 06/JUN/2006, 08/JUL/2002.
  16. HEPATITIS B VIRUS VACCINE [Concomitant]
     Active Substance: HEPATITIS B VIRUS VACCINE
     Dosage: DATES ADMINISTERED: 28/NOV/1993, 09/MAR/1994, 09/JUL/1994.
  17. HAEMOPHILUS INFLUENZAE TYPE B [Concomitant]
     Active Substance: HAEMOPHILUS INFLUENZAE TYPE B
     Dosage: DATES ADMINISTERED: 09/MAR/1994, 11/APR/1994, 09/AUG/1994, 20/MAR/1994
  18. INFLUENZA VIRUS VACCINE [Concomitant]
     Active Substance: INFLUENZA VIRUS VACCINE
     Dosage: DATES ADMINISTERED: 19/DEC/2003, 14/OCT/2013. 14/OCT/2015, 15/OCT/2016.
     Route: 030
  19. MEASLES-MUMPS-RUBELLA VIRUS VACCINE [Concomitant]
     Active Substance: MEASLES-MUMPS-RUBELLA VIRUS VACCINE
     Dosage: DATES ADMINISTERED: 09/JAN/1995, 06/DEC/1997.
     Route: 058
  20. MENINGOCOCCAL POLYSACCHARIDE VACCINE A NOS [Concomitant]
     Active Substance: MENINGOCOCCAL POLYSACCHARIDE VACCINE A\NEISSERIA MENINGITIDIS GROUP A CAPSULAR POLYSACCHARIDE ANTIGE
     Dosage: DATES ADMINISTERED: 22/NOV/2006.
  21. POLIOMYELITIS VACCINE NOS [Concomitant]
     Active Substance: POLIOMYELITIS VACCINE
     Dosage: DATES ADMINISTERED: 09/MAR/1994, 11/APR/1994, 09/SEP/1994. 08/DEC/1997
  22. VARICELLA-ZOSTER VIRUS STRAIN OKA/MERCK LIVE ANTIGEN [Concomitant]
     Active Substance: VARICELLA-ZOSTER VIRUS STRAIN OKA/MERCK LIVE ANTIGEN
     Dosage: DATES ADMINISTERED: 06/NOV/1999, 22/NOV/2006.
     Route: 058
  23. TYLENOL [Concomitant]
     Active Substance: ACETAMINOPHEN
  24. ALPRAZOLAM [Concomitant]
     Active Substance: ALPRAZOLAM
  25. FIORICET [Concomitant]
     Active Substance: ACETAMINOPHEN\BUTALBITAL\CAFFEINE
  26. CETIRIZINE HYDROCHLORIDE [Concomitant]
     Active Substance: CETIRIZINE HYDROCHLORIDE
  27. FAMOTIDINE [Concomitant]
     Active Substance: FAMOTIDINE
  28. IBUPROFEN [Concomitant]
     Active Substance: IBUPROFEN
  29. LORATADINE [Concomitant]
     Active Substance: LORATADINE
  30. MEDROXYPROGESTERONE [Concomitant]
     Active Substance: MEDROXYPROGESTERONE
  31. ONDANSETRON [Concomitant]
     Active Substance: ONDANSETRON

REACTIONS (3)
  - Off label use [Unknown]
  - No adverse event [Unknown]
  - Product dispensing error [Unknown]
